FAERS Safety Report 15175736 (Version 1)
Quarter: 2018Q3

REPORT INFORMATION
  Report Type: Spontaneous
  Country: US (occurrence: US)
  Receive Date: 20180720
  Receipt Date: 20180720
  Transmission Date: 20181010
  Serious: No
  Sender: FDA-Public Use
  Company Number: US-ACTELION-A-US2018-175728

PATIENT
  Age: 46 Year
  Sex: Female
  Weight: 108.84 kg

DRUGS (3)
  1. ADCIRCA [Concomitant]
     Active Substance: TADALAFIL
  2. OPSUMIT [Suspect]
     Active Substance: MACITENTAN
     Indication: PULMONARY ARTERIAL HYPERTENSION
     Dosage: 10 MG, QD
     Route: 048
  3. UPTRAVI [Concomitant]
     Active Substance: SELEXIPAG

REACTIONS (2)
  - Drug dose omission [Unknown]
  - Dyspnoea [Unknown]
